FAERS Safety Report 4554654-X (Version None)
Quarter: 2005Q1

REPORT INFORMATION
  Report Type: 
  Country: None (occurrence: None)
  Receive Date: 20041227
  Receipt Date: 20041020
  Transmission Date: 20050727
  Serious: No
  Sender: FDA-Public Use
  Company Number: 2004-0007656

PATIENT
  Age: 48 Year
  Sex: Male
  Weight: 67.1324 kg

DRUGS (11)
  1. VIREAD [Suspect]
     Indication: HIV INFECTION
     Dosage: 300 MG, 1 IN 1 D, ORAL
     Route: 048
     Dates: start: 20011206, end: 20031003
  2. MYCOBUTIN [Concomitant]
  3. PRAVACHOL [Concomitant]
  4. ACV         (ACICLOVIR) [Concomitant]
  5. KALETRA [Concomitant]
  6. LAMIVUDINE [Concomitant]
  7. DDI (DIDANOSINE) [Concomitant]
  8. QUETIAPINE (QUETIAPINE) [Concomitant]
  9. DIFLUCAN [Concomitant]
  10. CELEXA [Concomitant]
  11. SEPTRA DS [Concomitant]

REACTIONS (2)
  - HYPOPHOSPHATAEMIA [None]
  - POLYDIPSIA [None]
